FAERS Safety Report 5786610-8 (Version None)
Quarter: 2008Q2

REPORT INFORMATION
  Report Type: 
  Country: None (occurrence: None)
  Receive Date: 20080624
  Receipt Date: 20080612
  Transmission Date: 20081010
  Serious: Yes (Life-Threatening, Hospitalization, Congenital Anomaly, Other)
  Sender: FDA-Public Use
  Company Number: US-PFIZER INC-2008050217

PATIENT
  Sex: Male

DRUGS (3)
  1. ZOLOFT [Suspect]
     Indication: PREMENSTRUAL SYNDROME
  2. AMBIEN [Concomitant]
  3. HYDROCODONE [Concomitant]

REACTIONS (5)
  - COLLAPSE OF LUNG [None]
  - DRUG EXPOSURE DURING PREGNANCY [None]
  - EAR INFECTION [None]
  - POST PROCEDURAL COMPLICATION [None]
  - TRANSPOSITION OF THE GREAT VESSELS [None]
